FAERS Safety Report 25592125 (Version 1)
Quarter: 2025Q3

REPORT INFORMATION
  Report Type: Spontaneous
  Country: US (occurrence: US)
  Receive Date: 20250722
  Receipt Date: 20250722
  Transmission Date: 20251021
  Serious: No
  Sender: CALLIDITAS THERAPEUTICS AB
  Company Number: US-Calliditas-2025CAL01824

PATIENT
  Age: 70 Year
  Sex: Female

DRUGS (19)
  1. TARPEYO [Suspect]
     Active Substance: BUDESONIDE
     Indication: IgA nephropathy
     Route: 048
     Dates: start: 20250513
  2. ALLOPURINOL [Concomitant]
     Active Substance: ALLOPURINOL
  3. ASPIRIN [Concomitant]
     Active Substance: ASPIRIN
  4. AUGMENTIN [Concomitant]
     Active Substance: AMOXICILLIN\CLAVULANATE POTASSIUM
  5. BENZONATATE [Concomitant]
     Active Substance: BENZONATATE
  6. DIPHENHYDRAMINE [Concomitant]
     Active Substance: DIPHENHYDRAMINE
  7. DOXYCYCLINE [Concomitant]
     Active Substance: DOXYCYCLINE
  8. ENSTILAR [BETAMETHASONE DIPROPIONATE;CALCIPOTRIOL] [Concomitant]
  9. FERROUS SULFATE [Concomitant]
     Active Substance: FERROUS SULFATE
  10. FISH OIL [Concomitant]
     Active Substance: FISH OIL
  11. LEVOTHYROXINE [Concomitant]
     Active Substance: LEVOTHYROXINE
  12. MAGNESIUM OXIDE [Concomitant]
     Active Substance: MAGNESIUM OXIDE
  13. ROSUVASTATIN [Concomitant]
     Active Substance: ROSUVASTATIN
  14. SPIRONOLACTONE [Concomitant]
     Active Substance: SPIRONOLACTONE
  15. BIOTIN [Concomitant]
     Active Substance: BIOTIN
  16. CLOBETASOL [Concomitant]
     Active Substance: CLOBETASOL
  17. VALSARTAN [Concomitant]
     Active Substance: VALSARTAN
  18. VITAMIN D3 [Concomitant]
     Active Substance: CHOLECALCIFEROL
  19. EZETIMIBE [Concomitant]
     Active Substance: EZETIMIBE

REACTIONS (9)
  - Flatulence [Unknown]
  - Abdominal discomfort [Unknown]
  - Weight increased [Unknown]
  - Increased appetite [Unknown]
  - Diarrhoea [Not Recovered/Not Resolved]
  - Swelling face [Not Recovered/Not Resolved]
  - Oedema peripheral [Not Recovered/Not Resolved]
  - Glomerular filtration rate decreased [Not Recovered/Not Resolved]
  - Gastrooesophageal reflux disease [Not Recovered/Not Resolved]
